FAERS Safety Report 7586986-5 (Version None)
Quarter: 2011Q3

REPORT INFORMATION
  Report Type: 
  Country: None (occurrence: None)
  Receive Date: 20110701
  Receipt Date: 20110622
  Transmission Date: 20111222
  Serious: Yes (Other)
  Sender: FDA-Public Use
  Company Number: PHFR2011GB03954

PATIENT
  Sex: Female

DRUGS (1)
  1. ESTRADERM [Suspect]
     Dosage: UNK UKN, UNK
     Route: 062
     Dates: start: 20061201

REACTIONS (5)
  - ERYTHEMA [None]
  - BONE DISORDER [None]
  - BACK PAIN [None]
  - MUSCLE SPASMS [None]
  - ABASIA [None]
